FAERS Safety Report 8962266 (Version 1)
Quarter: 2012Q4

REPORT INFORMATION
  Report Type: 
  Country: US (occurrence: US)
  Receive Date: 20121212
  Receipt Date: 20121212
  Transmission Date: 20130627
  Serious: Yes (Other)
  Sender: FDA-Public Use
  Company Number: US-PFIZER INC-2012311942

PATIENT
  Age: 68 Year
  Sex: Male
  Weight: 102.4 kg

DRUGS (7)
  1. LIPITOR [Suspect]
     Indication: HIGH CHOLESTEROL
     Dosage: 10 mg, 1x/day
     Route: 048
  2. TAMSULOSIN [Concomitant]
     Indication: ENLARGED PROSTATE
     Dosage: 0.4 mg, UNK
  3. CO-Q-10 [Concomitant]
     Dosage: 200 mg, UNK
  4. ASPIRIN [Concomitant]
     Dosage: 81 mg, UNK
  5. SAW PALMETTO [Concomitant]
     Dosage: 40 mg, UNK
  6. MULTIVITAMINS [Concomitant]
     Dosage: UNK
  7. TYLENOL W/CODEINE NO. 4 [Concomitant]
     Indication: PAIN
     Dosage: UNK

REACTIONS (1)
  - Heart rate increased [Unknown]
